FAERS Safety Report 15289052 (Version 1)
Quarter: 2018Q3

REPORT INFORMATION
  Report Type: Spontaneous
  Country: US (occurrence: US)
  Receive Date: 20180803
  Receipt Date: 20180803
  Transmission Date: 20181010
  Serious: Yes (Other)
  Sender: FDA-Public Use
  Company Number: None

PATIENT
  Age: 54 Year
  Sex: Female
  Weight: 94.05 kg

DRUGS (1)
  1. BIO?IDENTICAL HORMONE REPLACEMENT: C?BIEST (50:50)1MG/P?50MG/T?1MG  (ESTRADIOL\ESTRIOL) [Suspect]
     Active Substance: ESTRADIOL\ESTRIOL
     Indication: HORMONE REPLACEMENT THERAPY
     Dosage: ?          QUANTITY:1 SUPPOSITORY(IES);?
     Route: 067
     Dates: start: 20180721, end: 20180803

REACTIONS (8)
  - Application site inflammation [None]
  - Application site pain [None]
  - Product sterility lacking [None]
  - Product leakage [None]
  - Application site irritation [None]
  - Product substitution issue [None]
  - Insomnia [None]
  - Product compounding quality issue [None]

NARRATIVE: CASE EVENT DATE: 20180802
